FAERS Safety Report 18313656 (Version 11)
Quarter: 2024Q3

REPORT INFORMATION
  Report Type: Spontaneous
  Country: US (occurrence: US)
  Receive Date: 20200925
  Receipt Date: 20240913
  Transmission Date: 20241017
  Serious: Yes (Other)
  Sender: PFIZER
  Company Number: US-PFIZER INC-2020371134

PATIENT
  Age: 70 Year
  Sex: Female
  Weight: 99.773 kg

DRUGS (7)
  1. XELJANZ [Suspect]
     Active Substance: TOFACITINIB CITRATE
     Indication: Rheumatoid arthritis
     Dosage: 5 MG
     Route: 048
  2. VRAYLAR [Concomitant]
     Active Substance: CARIPRAZINE
     Dosage: UNK
  3. PREDNISONE [Concomitant]
     Active Substance: PREDNISONE
     Indication: Arthritis
     Dosage: UNK, AS NEEDED
  4. PREDNISONE [Concomitant]
     Active Substance: PREDNISONE
     Indication: Infection
  5. AMOXICILLIN [Concomitant]
     Active Substance: AMOXICILLIN
     Indication: Arthritis
     Dosage: UNK, AS NEEDED
  6. AMOXICILLIN [Concomitant]
     Active Substance: AMOXICILLIN
     Indication: Infection
  7. SYNTHROID [Concomitant]
     Active Substance: LEVOTHYROXINE SODIUM
     Indication: Thyroid disorder
     Dosage: 50 MG

REACTIONS (4)
  - Hip arthroplasty [Unknown]
  - Anxiety [Unknown]
  - Memory impairment [Unknown]
  - Panic attack [Unknown]
